FAERS Safety Report 20867010 (Version 1)
Quarter: 2022Q2

REPORT INFORMATION
  Report Type: Spontaneous
  Country: US (occurrence: None)
  Receive Date: 20220523
  Receipt Date: 20220523
  Transmission Date: 20220721
  Serious: Yes (Disabling)
  Sender: FDA-Public Use
  Company Number: None

PATIENT
  Age: 61 Year
  Sex: Female
  Weight: 50.85 kg

DRUGS (4)
  1. MIACALCIN [Suspect]
     Active Substance: CALCITONIN SALMON
     Indication: Bone density decreased
     Dosage: OTHER QUANTITY : 1 SPRAY(S);?FREQUENCY : DAILY;?OTHER ROUTE : ALTERNATING NOSTRILS;?
     Route: 050
     Dates: start: 20050501, end: 20050701
  2. VITAMIN D [Concomitant]
     Active Substance: VITAMIN D NOS
  3. ADVIL [Concomitant]
     Active Substance: IBUPROFEN
  4. VITAMINS [Concomitant]
     Active Substance: VITAMINS

REACTIONS (3)
  - Musculoskeletal stiffness [None]
  - Musculoskeletal stiffness [None]
  - Therapy cessation [None]

NARRATIVE: CASE EVENT DATE: 20050501
